FAERS Safety Report 4909622-2 (Version None)
Quarter: 2006Q1

REPORT INFORMATION
  Report Type: 
  Country: None (occurrence: None)
  Receive Date: 20060209
  Receipt Date: 20060120
  Transmission Date: 20060701
  Serious: Yes (Other)
  Sender: FDA-Public Use
  Company Number: US200601003977

PATIENT
  Sex: Female

DRUGS (3)
  1. FORTEO [Suspect]
     Dates: start: 20050101
  2. FORTEO [Concomitant]
  3. PREDNISONE [Concomitant]

REACTIONS (3)
  - HIP FRACTURE [None]
  - OSTEONECROSIS [None]
  - PHARMACEUTICAL PRODUCT COMPLAINT [None]
